FAERS Safety Report 24756134 (Version 1)
Quarter: 2024Q4

REPORT INFORMATION
  Report Type: Report from Study
  Country: JP (occurrence: JP)
  Receive Date: 20241219
  Receipt Date: 20241219
  Transmission Date: 20250114
  Serious: Yes (Hospitalization, Other)
  Sender: AMGEN
  Company Number: JP-KISSEI-TV20241029_P_1

PATIENT
  Age: 74 Year
  Sex: Male

DRUGS (39)
  1. AVACOPAN [Suspect]
     Active Substance: AVACOPAN
     Indication: Granulomatosis with polyangiitis
     Dosage: 30 MG, BID (EVERY 12 HOURS)
     Route: 048
     Dates: start: 20230929, end: 20240426
  2. AVACOPAN [Suspect]
     Active Substance: AVACOPAN
     Dosage: 30 MG, BID (EVERY 12 HOURS)
     Route: 048
     Dates: start: 20240511
  3. PREDNISOLONE [Suspect]
     Active Substance: PREDNISOLONE
     Indication: Granulomatosis with polyangiitis
     Dosage: 70 MG, QD
     Route: 048
  4. PREDNISOLONE [Suspect]
     Active Substance: PREDNISOLONE
     Indication: Pneumocystis jirovecii pneumonia
     Dosage: 10 MG, QD
     Route: 048
     Dates: start: 20230929, end: 20231019
  5. PREDNISOLONE [Suspect]
     Active Substance: PREDNISOLONE
     Dosage: 8 MG, QD
     Route: 048
     Dates: start: 20231020, end: 20231109
  6. PREDNISOLONE [Suspect]
     Active Substance: PREDNISOLONE
     Dosage: 7 MG, QD
     Route: 048
     Dates: start: 20231110, end: 20240208
  7. PREDNISOLONE [Suspect]
     Active Substance: PREDNISOLONE
     Dosage: 20 MG, QD
     Route: 048
     Dates: start: 20240209, end: 20240329
  8. PREDNISOLONE [Suspect]
     Active Substance: PREDNISOLONE
     Dosage: 15 MG, QD
     Route: 048
     Dates: start: 20240330, end: 20240429
  9. PREDNISOLONE [Suspect]
     Active Substance: PREDNISOLONE
     Dosage: 80 MG, QD
     Route: 048
     Dates: start: 20240430, end: 20240504
  10. PREDNISOLONE [Suspect]
     Active Substance: PREDNISOLONE
     Dosage: 40 MG, QD
     Route: 048
     Dates: start: 20240505, end: 20240509
  11. PREDNISOLONE [Suspect]
     Active Substance: PREDNISOLONE
     Dosage: 15 MG, QD
     Route: 048
     Dates: start: 20240510, end: 20240523
  12. PREDNISOLONE [Suspect]
     Active Substance: PREDNISOLONE
     Dosage: 12.5 MG, QD
     Route: 048
     Dates: start: 20240524, end: 20240620
  13. PREDNISOLONE [Suspect]
     Active Substance: PREDNISOLONE
     Dosage: 10 MG, QD
     Route: 048
     Dates: start: 20240621, end: 20240718
  14. PREDNISOLONE [Suspect]
     Active Substance: PREDNISOLONE
     Dosage: 9 MG, QD
     Route: 048
     Dates: start: 20240719, end: 20240815
  15. PREDNISOLONE [Suspect]
     Active Substance: PREDNISOLONE
     Dosage: 8 MG, QD
     Route: 048
     Dates: start: 20240816, end: 20240905
  16. PREDNISOLONE [Suspect]
     Active Substance: PREDNISOLONE
     Dosage: 7 MG, QD
     Route: 048
     Dates: start: 20240906
  17. RITUXIMAB [Suspect]
     Active Substance: RITUXIMAB
     Indication: Granulomatosis with polyangiitis
     Dosage: 700 MG
     Route: 040
     Dates: start: 20240322, end: 20240322
  18. RITUXIMAB [Suspect]
     Active Substance: RITUXIMAB
     Dosage: 700 MG
     Route: 040
     Dates: start: 20240329, end: 20240329
  19. RITUXIMAB [Suspect]
     Active Substance: RITUXIMAB
     Dosage: 700 MG
     Route: 040
     Dates: start: 20240405, end: 20240405
  20. RITUXIMAB [Suspect]
     Active Substance: RITUXIMAB
     Dosage: 700 MG
     Route: 040
     Dates: start: 20240412, end: 20240412
  21. RITUXIMAB [Suspect]
     Active Substance: RITUXIMAB
     Dosage: 700 MG
     Route: 040
     Dates: start: 20240906, end: 20240906
  22. RITUXIMAB [Suspect]
     Active Substance: RITUXIMAB
     Dosage: 700 MG
     Route: 040
     Dates: start: 20240913, end: 20240913
  23. RITUXIMAB [Suspect]
     Active Substance: RITUXIMAB
     Dosage: 700 MG
     Route: 040
     Dates: start: 20240920, end: 20240920
  24. RITUXIMAB [Suspect]
     Active Substance: RITUXIMAB
     Dosage: 700 MG
     Route: 040
     Dates: start: 20240927
  25. SULFAMETHOXAZOLE\TRIMETHOPRIM [Concomitant]
     Active Substance: SULFAMETHOXAZOLE\TRIMETHOPRIM
     Indication: Antifungal prophylaxis
     Dosage: 240 MG, QW
     Route: 048
     Dates: end: 20231207
  26. SULFAMETHOXAZOLE\TRIMETHOPRIM [Concomitant]
     Active Substance: SULFAMETHOXAZOLE\TRIMETHOPRIM
     Indication: Pneumocystis jirovecii pneumonia
     Dosage: 40 MG, QD
     Route: 048
     Dates: start: 20240510
  27. CYCLOPHOSPHAMIDE [Concomitant]
     Active Substance: CYCLOPHOSPHAMIDE
     Indication: Granulomatosis with polyangiitis
     Dosage: 900 MG
     Route: 041
     Dates: start: 20230929, end: 20230929
  28. CYCLOPHOSPHAMIDE [Concomitant]
     Active Substance: CYCLOPHOSPHAMIDE
     Dosage: 900 MG
     Route: 040
     Dates: start: 20231020, end: 20231020
  29. CYCLOPHOSPHAMIDE [Concomitant]
     Active Substance: CYCLOPHOSPHAMIDE
     Dosage: 900 MG
     Route: 040
     Dates: start: 20231110, end: 20231110
  30. AMLODIPINE BESYLATE [Concomitant]
     Active Substance: AMLODIPINE BESYLATE
     Dosage: UNK
     Route: 048
  31. RABEPRAZOLE SODIUM [Concomitant]
     Active Substance: RABEPRAZOLE SODIUM
     Dosage: UNK
     Route: 048
  32. PLAVIX [Concomitant]
     Active Substance: CLOPIDOGREL BISULFATE
     Dosage: UNK
     Route: 048
  33. LIPITOR [Concomitant]
     Active Substance: ATORVASTATIN CALCIUM
     Dosage: UNK
     Route: 048
  34. PENTASA [Concomitant]
     Active Substance: MESALAMINE
     Dosage: 2000 MG, QD
     Route: 048
  35. PENTASA [Concomitant]
     Active Substance: MESALAMINE
     Dosage: 1 GRAM, QD
     Route: 065
  36. Olmetec d [Concomitant]
     Dosage: UNK
     Route: 048
  37. VEMLIDY [Concomitant]
     Active Substance: TENOFOVIR ALAFENAMIDE FUMARATE
     Dosage: UNK
     Route: 048
  38. ACTONEL [Concomitant]
     Active Substance: RISEDRONATE SODIUM
     Dosage: UNK
     Route: 048
  39. BROMFENAC SODIUM [Concomitant]
     Active Substance: BROMFENAC SODIUM
     Dosage: UNK
     Route: 047

REACTIONS (1)
  - Pneumocystis jirovecii pneumonia [Recovered/Resolved]

NARRATIVE: CASE EVENT DATE: 20240426
